FAERS Safety Report 6640381-1 (Version None)
Quarter: 2010Q1

REPORT INFORMATION
  Report Type: 
  Country: None (occurrence: None)
  Receive Date: 20100303
  Receipt Date: 20090305
  Transmission Date: 20100710
  Serious: Yes (Other)
  Sender: FDA-Public Use
  Company Number: 619164

PATIENT
  Age: 56 Year
  Sex: Female

DRUGS (1)
  1. BONIVA [Suspect]
     Dosage: 3 MG 1 PER 3 MONTH INTRAVENOUS
     Route: 042

REACTIONS (4)
  - ADVERSE EVENT [None]
  - BURNING SENSATION [None]
  - ERYTHEMA [None]
  - URTICARIA [None]
